FAERS Safety Report 21810831 (Version 2)
Quarter: 2023Q1

REPORT INFORMATION
  Report Type: Spontaneous
  Country: US (occurrence: US)
  Receive Date: 20230103
  Receipt Date: 20230127
  Transmission Date: 20230417
  Serious: No
  Sender: FDA-Public Use
  Company Number: US-BIOVITRUM-2023US00092

PATIENT
  Sex: Male
  Weight: 9 kg

DRUGS (26)
  1. SYNAGIS [Suspect]
     Active Substance: PALIVIZUMAB
     Indication: Lung disorder
     Dates: start: 202211
  2. SYNAGIS [Suspect]
     Active Substance: PALIVIZUMAB
     Indication: Low birth weight baby
  3. LEVOTHYROXINE [Concomitant]
     Active Substance: LEVOTHYROXINE
     Dosage: 25 MCG CAPSULE
  4. LEVOTHYROXINE [Concomitant]
     Active Substance: LEVOTHYROXINE
     Dosage: 25 MCG TOTAL, GASTROSTOMY TUBE
  5. CAROSPIR [Concomitant]
     Active Substance: SPIRONOLACTONE
     Dosage: 25 MG/5 ML ORAL SUSP
  6. SILDENAFIL CITRATE [Concomitant]
     Active Substance: SILDENAFIL CITRATE
     Dosage: POWDER
  7. BUMETANIDE [Concomitant]
     Active Substance: BUMETANIDE
     Dosage: 0.25 MG/ML VIAL
  8. BUMETANIDE [Concomitant]
     Active Substance: BUMETANIDE
     Dosage: 180 TABLETS GASTROSTOMY TUBE 2 TIMES DAILY. DO NOT DISSOLVE IN 2-3 ML OF WATER
  9. MULTIVITAMINS WITH IRON [ASCORBIC ACID;CYANOCOBALAMIN;ERGOCALCIFEROL;F [Concomitant]
     Dosage: 1 ML IN GASTROSTOMY TUBE, 11 MG/KG ORAL SOLUTION
  10. OMEPRAZOLE [Concomitant]
     Active Substance: OMEPRAZOLE
     Dosage: 2 MG/ML ORAL SUSPENSION, PLACE 5 ML(10 MG TOTAL) IN GASTROTOMY TUBE.
  11. BUDESONIDE [Concomitant]
     Active Substance: BUDESONIDE
     Dosage: 0.5 MG/2 ML INHALATION NEBULIZER SUSPENSION FOR ENTERAL USE.
  12. SPIRONOLACTONE [Concomitant]
     Active Substance: SPIRONOLACTONE
     Dosage: 25 MG/5ML ORAL SUSPENSION, PLACE 1.7 ML (9 MG TOTAL) IN GASTROTOMY TUBE.
  13. SILDENAFIL [Concomitant]
     Active Substance: SILDENAFIL
     Dosage: 10MG/ML ORAL SUSPENSION, PLACE 1ML (10 112 ML TOTAL) IN GASTROTOMY TUBE.
  14. HYDROCORTISONE [Concomitant]
     Active Substance: HYDROCORTISONE
     Dosage: APPLY TO SKIN 3 TIMES DAILY. TO RASH OF FACE, 2.5% APPLY TO AFFECTED AREAS OINTMENT
  15. GLYCERIN [Concomitant]
     Active Substance: GLYCERIN
     Indication: Constipation
     Dosage: 10 SUPPOSITORY, 1 SUPPOSITORY (1 G TOTAL)IN RECTUM EVERY 12 HOURS AS NEEDED FOR CONSTIPATION.
  16. POLYETHYLENE GLYCOL [MACROGOL 3350] [Concomitant]
     Dosage: PLACE ONE QUARTER CAPFUL (S) (4.25 G TOTAL)IN GASTOMY TUBE, 17 G ORAL PACKET.
  17. MONOGEN [Concomitant]
     Dosage: 30 DAYS DISPENCE 5100 G, MONOGEN 24 CAL/OZ, MIX 780 ML WATER AND 170 G MONOGEN POWDER
  18. ALBUTEROL [Concomitant]
     Active Substance: ALBUTEROL
     Indication: Wheezing
     Dosage: ONE VIAL BU NEBULIZER ROUTE EVERY 4 HOURS AS NEEDED, (2.5 MG/3 ML) 0.083% INHALATION NEBULIZER SOLUT
  19. ALBUTEROL SULFATE [Concomitant]
     Active Substance: ALBUTEROL SULFATE
     Indication: Wheezing
     Dosage: INHALE TWO PUFF 3 EACH BY MOUTH EVERY 4 HOURS AS NEEDED, 108 (90 BASE) MCG/ACT INHALATION ORAL INHAL
  20. SODIUM CHLORIDE [Concomitant]
     Active Substance: SODIUM CHLORIDE
     Indication: Secretion discharge
     Dosage: BY NEBULIZER ROUTE AS NEEDED, 0.9% INHALATION NEBULIZER SOLUTION.
  21. SODIUM CHLORIDE [Concomitant]
     Active Substance: SODIUM CHLORIDE
  22. CARBOXYMETHYLCELLULOSE [Concomitant]
     Active Substance: CARBOXYMETHYLCELLULOSE
     Dosage: ONE DROP IN BOTH EYES, 0.5% OPTHALMIC SOLUTION.
  23. ACETAMINOPHEN [Concomitant]
     Active Substance: ACETAMINOPHEN
     Indication: Pyrexia
     Dosage: IN GASTROSTOMY TUBE,
  24. SENNOSIDES [Concomitant]
     Active Substance: SENNOSIDES
     Dosage: PLACE 2.5 ML (4.4 MG TOTAL) IN GASTROSTOMY TUBE, 8.8 MG/5 ML ORAL SOLUTION.
  25. ALBUTEROL [Concomitant]
     Active Substance: ALBUTEROL
     Indication: Cough
  26. IRON\VITAMINS [Concomitant]
     Active Substance: IRON\VITAMINS

REACTIONS (2)
  - Anger [Recovered/Resolved]
  - Crying [Recovered/Resolved]
